FAERS Safety Report 4936777-6 (Version None)
Quarter: 2006Q1

REPORT INFORMATION
  Report Type: 
  Country: None (occurrence: None)
  Receive Date: 20060307
  Receipt Date: 20060223
  Transmission Date: 20060701
  Serious: Yes (Hospitalization, Other)
  Sender: FDA-Public Use
  Company Number: US-MERCK-0603USA00765

PATIENT
  Age: 56 Year
  Sex: Female
  Weight: 75 kg

DRUGS (1)
  1. VIOXX [Suspect]
     Indication: ARTHRITIS
     Route: 048
     Dates: start: 20001221, end: 20040812

REACTIONS (5)
  - CEREBROVASCULAR ACCIDENT [None]
  - HEMIANOPIA [None]
  - MIGRAINE [None]
  - SHOULDER PAIN [None]
  - SKIN DISORDER [None]
